FAERS Safety Report 5673244-9 (Version None)
Quarter: 2008Q1

REPORT INFORMATION
  Report Type: 
  Country: None (occurrence: None)
  Receive Date: 20080319
  Receipt Date: 20080311
  Transmission Date: 20080703
  Serious: No
  Sender: FDA-Public Use
  Company Number: JP-ELI_LILLY_AND_COMPANY-JP200802004711

PATIENT
  Age: 62 Year
  Sex: Male

DRUGS (2)
  1. GEMZAR [Suspect]
     Indication: NON-SMALL CELL LUNG CANCER
     Dosage: 1400 MG, OTHER
     Route: 042
     Dates: start: 20080129, end: 20080205
  2. NAVELBINE [Concomitant]
     Indication: NON-SMALL CELL LUNG CANCER
     Dosage: 35 MG, OTHER
     Route: 042
     Dates: start: 20080129, end: 20080205

REACTIONS (2)
  - FACE OEDEMA [None]
  - OEDEMA PERIPHERAL [None]
